FAERS Safety Report 18240557 (Version 1)
Quarter: 2020Q3

REPORT INFORMATION
  Report Type: Report from Study
  Country: IT (occurrence: IT)
  Receive Date: 20200908
  Receipt Date: 20200908
  Transmission Date: 20201103
  Serious: Yes (Other)
  Sender: FDA-Public Use
  Company Number: IT-AUROBINDO-AUR-APL-2020-047052

PATIENT

DRUGS (1)
  1. PARACETAMOL  1000 MG TABLETS [Suspect]
     Active Substance: ACETAMINOPHEN
     Indication: PAIN
     Dosage: 1000 MILLIGRAM, 3 TIMES A DAY AS REQUIRED
     Route: 065

REACTIONS (1)
  - Drug abuse [Unknown]
